FAERS Safety Report 7993131-0 (Version None)
Quarter: 2011Q4

REPORT INFORMATION
  Report Type: 
  Country: None (occurrence: None)
  Receive Date: 20111219
  Receipt Date: 20110208
  Transmission Date: 20120403
  Serious: No
  Sender: FDA-Public Use
  Company Number: US-ASTRAZENECA-2011SE07229

PATIENT
  Age: 74 Year
  Sex: Male
  Weight: 72.6 kg

DRUGS (6)
  1. LORATADINE [Concomitant]
  2. CRESTOR [Suspect]
     Indication: HYPERCHOLESTEROLAEMIA
     Route: 048
     Dates: start: 20101101, end: 20110101
  3. CRESTOR [Suspect]
     Route: 048
     Dates: start: 20110207
  4. CRESTOR [Suspect]
     Route: 048
     Dates: start: 20110101, end: 20110101
  5. DOXAZOSIN MESYLATE [Concomitant]
  6. DILANTIN [Concomitant]

REACTIONS (5)
  - URTICARIA [None]
  - RASH [None]
  - LIP SWELLING [None]
  - DRUG INEFFECTIVE [None]
  - DRUG HYPERSENSITIVITY [None]
